FAERS Safety Report 5168357-4 (Version None)
Quarter: 2006Q4

REPORT INFORMATION
  Report Type: 
  Country: None (occurrence: None)
  Receive Date: 20061129
  Receipt Date: 20061116
  Transmission Date: 20070319
  Serious: Yes (Hospitalization, Other)
  Sender: FDA-Public Use
  Company Number: HQWYE780116NOV06

PATIENT
  Age: 91 Year
  Sex: Female

DRUGS (11)
  1. CORDARONE [Suspect]
     Dosage: 100 MG 1X PER 1 DAY
     Route: 048
  2. PREVISCAN                 (FLUINDIONE ) [Suspect]
     Dosage: 10 MG 1X PER 1 DAY
     Route: 048
     Dates: end: 20060927
  3. PRAVASTATIN [Suspect]
     Dosage: 40 MG 1X PER 1 DAY
     Route: 048
     Dates: end: 20060927
  4. ALLOPURINOL [Suspect]
     Dosage: 200 MG 1X PER 1 DAY
     Route: 048
     Dates: end: 20060927
  5. IMODIUM [Concomitant]
  6. TIORFAN             (ACETORPHAN) [Concomitant]
  7. LASIX [Concomitant]
  8. ACETAMINOPHEN [Concomitant]
  9. NEORECORMON                    (EPOETIN  BETA) [Concomitant]
  10. ISOPHANE INSULIN [Concomitant]
  11. NOVORAPID              (INSULIN ASPART) [Concomitant]

REACTIONS (5)
  - DRUG INTERACTION [None]
  - INTERNATIONAL NORMALISED RATIO INCREASED [None]
  - PROTHROMBIN TIME SHORTENED [None]
  - PSEUDOMEMBRANOUS COLITIS [None]
  - RECTAL HAEMORRHAGE [None]
